FAERS Safety Report 6306702-4 (Version None)
Quarter: 2009Q3

REPORT INFORMATION
  Report Type: 
  Country: None (occurrence: None)
  Receive Date: 20090812
  Receipt Date: 20090802
  Transmission Date: 20100115
  Serious: No
  Sender: FDA-Public Use
  Company Number: A0782782A

PATIENT
  Age: 82 Year
  Sex: Female

DRUGS (7)
  1. VERAMYST [Suspect]
     Dosage: 2SPR PER DAY
     Route: 045
     Dates: start: 20090421
  2. PREDNISONE [Suspect]
     Indication: DRUG USE FOR UNKNOWN INDICATION
  3. SYNTHROID [Concomitant]
  4. HYZAAR [Concomitant]
  5. TYLENOL ES [Concomitant]
  6. ULTRAM [Concomitant]
  7. PREDNISONE [Concomitant]

REACTIONS (4)
  - DRUG INEFFECTIVE [None]
  - FEELING ABNORMAL [None]
  - PRODUCT QUALITY ISSUE [None]
  - VISION BLURRED [None]
